FAERS Safety Report 4380362-4 (Version None)
Quarter: 2004Q2

REPORT INFORMATION
  Report Type: 
  Country: None (occurrence: None)
  Receive Date: 20040618
  Receipt Date: 20040610
  Transmission Date: 20050107
  Serious: Yes (Hospitalization)
  Sender: FDA-Public Use
  Company Number: 200415864GDDC

PATIENT
  Age: 84 Year
  Sex: Female

DRUGS (1)
  1. FLUDEX [Suspect]
     Indication: ESSENTIAL HYPERTENSION
     Dates: end: 20040401

REACTIONS (4)
  - ATRIAL FIBRILLATION [None]
  - BLOOD POTASSIUM INCREASED [None]
  - BLOOD PRESSURE DECREASED [None]
  - HYPOKALAEMIA [None]
